FAERS Safety Report 7647323-0 (Version None)
Quarter: 2011Q3

REPORT INFORMATION
  Report Type: 
  Country: None (occurrence: None)
  Receive Date: 20110801
  Receipt Date: 20110722
  Transmission Date: 20111222
  Serious: Yes (Hospitalization)
  Sender: FDA-Public Use
  Company Number: CO-ROCHE-791778

PATIENT
  Sex: Male

DRUGS (1)
  1. AVASTIN [Suspect]
     Indication: GLIOBLASTOMA
     Route: 042
     Dates: start: 20110222

REACTIONS (1)
  - COMA [None]
